FAERS Safety Report 7168179-9 (Version None)
Quarter: 2010Q4

REPORT INFORMATION
  Report Type: 
  Country: None (occurrence: None)
  Receive Date: 20101216
  Receipt Date: 20101209
  Transmission Date: 20110411
  Serious: Yes (Hospitalization)
  Sender: FDA-Public Use
  Company Number: JP-PFIZER INC-2010168563

PATIENT
  Age: 78 Year
  Sex: Male

DRUGS (1)
  1. ZITHROMAX [Suspect]
     Dosage: 500 MG, 1X/DAY
     Route: 048

REACTIONS (1)
  - RHABDOMYOLYSIS [None]
